FAERS Safety Report 9123620 (Version 2)
Quarter: 2013Q1

REPORT INFORMATION
  Report Type: Spontaneous
  Country: US (occurrence: US)
  Receive Date: 20130114
  Receipt Date: 20130314
  Transmission Date: 20140127
  Serious: Yes (Other)
  Sender: FDA-Public Use
  Company Number: US-PFIZER INC-2013013049

PATIENT
  Age: 57 Year
  Sex: Male
  Weight: 100 kg

DRUGS (4)
  1. LIPITOR [Suspect]
     Indication: CARDIAC DISORDER
     Dosage: 50 MG, DAILY
  2. ATORVASTATIN CALCIUM [Suspect]
     Indication: CARDIAC DISORDER
     Dosage: UNK
  3. METOPROLOL [Concomitant]
     Dosage: 50 MG, 2X/DAY
  4. ENALAPRIL [Concomitant]
     Dosage: UNK

REACTIONS (3)
  - Myocardial infarction [Unknown]
  - Coronary artery occlusion [Unknown]
  - Intervertebral disc protrusion [Unknown]
